FAERS Safety Report 20655050 (Version 1)
Quarter: 2022Q1

REPORT INFORMATION
  Report Type: Spontaneous
  Country: US (occurrence: None)
  Receive Date: 20220330
  Receipt Date: 20220330
  Transmission Date: 20220423
  Serious: Yes (Hospitalization)
  Sender: FDA-Public Use
  Company Number: None

PATIENT
  Sex: Female
  Weight: 53 kg

DRUGS (3)
  1. TAXOL [Suspect]
     Active Substance: PACLITAXEL
     Dates: start: 20211220, end: 20220307
  2. PERTUZUMAB [Suspect]
     Active Substance: PERTUZUMAB
     Dates: start: 20211220, end: 20220221
  3. HERCEPTIN [Suspect]
     Active Substance: TRASTUZUMAB
     Dates: start: 20211220, end: 20220221

REACTIONS (6)
  - Pneumonia [None]
  - Blood potassium decreased [None]
  - Lumbar vertebral fracture [None]
  - Osteoporosis [None]
  - Cytomegalovirus test positive [None]
  - Staphylococcus test positive [None]

NARRATIVE: CASE EVENT DATE: 20220316
